FAERS Safety Report 7301593-7 (Version None)
Quarter: 2011Q1

REPORT INFORMATION
  Report Type: 
  Country: None (occurrence: None)
  Receive Date: 20110218
  Receipt Date: 20110208
  Transmission Date: 20110831
  Serious: Yes (Other)
  Sender: FDA-Public Use
  Company Number: GB-NAPPMUNDI-GBR-2010-0006108

PATIENT
  Sex: Female

DRUGS (5)
  1. OXYCONTIN [Suspect]
     Indication: CHEST PAIN
     Dosage: 40 MG TO 240 MG DAILY
     Dates: start: 20080401, end: 20090101
  2. QUETIAPINE [Concomitant]
     Indication: PSYCHOTIC DISORDER
     Route: 065
  3. OXYCODONE HCL [Suspect]
     Indication: CHEST PAIN
     Dosage: 40 MG TO 240 MG DAILY
     Dates: start: 20080401, end: 20090101
  4. ESCITALOPRAM [Concomitant]
     Indication: DEPRESSION
     Route: 065
  5. OXYCODONE HCL [Suspect]
     Dosage: 40 MG
     Dates: start: 20080401

REACTIONS (6)
  - INTENTIONAL DRUG MISUSE [None]
  - AKATHISIA [None]
  - DRUG WITHDRAWAL SYNDROME [None]
  - DRUG DEPENDENCE [None]
  - SUICIDAL IDEATION [None]
  - CONFUSIONAL STATE [None]
